FAERS Safety Report 6259511-9 (Version None)
Quarter: 2009Q3

REPORT INFORMATION
  Report Type: 
  Country: None (occurrence: None)
  Receive Date: 20090708
  Receipt Date: 20090702
  Transmission Date: 20100115
  Serious: Yes (Hospitalization)
  Sender: FDA-Public Use
  Company Number: US-BRISTOL-MYERS SQUIBB COMPANY-14643639

PATIENT
  Age: 27 Year
  Sex: Female
  Weight: 91 kg

DRUGS (7)
  1. SPRYCEL [Suspect]
     Indication: HEPATIC NEOPLASM MALIGNANT
     Dosage: INITIALY TAKEN ON 04DEC2008 CYCLE=28 DAYS NO OF COURSE:6 LAST DOSE 6MAY09 AT 840MG
     Route: 048
     Dates: start: 20081204, end: 20090506
  2. BENICAR [Concomitant]
  3. COMPAZINE [Concomitant]
  4. LOMOTIL [Concomitant]
  5. REGLAN [Concomitant]
  6. SINGULAIR [Concomitant]
  7. TRAMADOL HCL [Concomitant]

REACTIONS (4)
  - DIZZINESS [None]
  - FATIGUE [None]
  - HAEMOGLOBIN DECREASED [None]
  - THROMBOTIC MICROANGIOPATHY [None]
